FAERS Safety Report 6654405-9 (Version None)
Quarter: 2010Q1

REPORT INFORMATION
  Report Type: 
  Country: None (occurrence: None)
  Receive Date: 20100326
  Receipt Date: 20100316
  Transmission Date: 20100710
  Serious: Yes (Other)
  Sender: FDA-Public Use
  Company Number: JP-PFIZER INC-2010036395

PATIENT

DRUGS (1)
  1. SOLANAX [Suspect]
     Indication: HYPEREMESIS GRAVIDARUM
     Dosage: UNK
     Route: 064

REACTIONS (2)
  - DRUG EXPOSURE DURING PREGNANCY [None]
  - JOINT CONTRACTURE [None]
